FAERS Safety Report 9222068 (Version 1)
Quarter: 2013Q2

REPORT INFORMATION
  Report Type: Spontaneous
  Country: US (occurrence: US)
  Receive Date: 20130410
  Receipt Date: 20130410
  Transmission Date: 20140414
  Serious: No
  Sender: FDA-Public Use
  Company Number: US-PFIZER INC-2013108814

PATIENT
  Age: 75 Year
  Sex: Male
  Weight: 90.7 kg

DRUGS (14)
  1. VFEND [Suspect]
     Indication: ASPERGILLUS INFECTION
     Dosage: 200 MG, 2X/DAY
     Route: 048
     Dates: start: 201302
  2. VFEND [Suspect]
     Indication: LUNG DISORDER
     Dosage: 400 MG, 2X/DAY
     Route: 048
     Dates: start: 2013
  3. ASPIRIN [Concomitant]
     Indication: ARTHROPATHY
     Dosage: 81 MG, DAILY
  4. COSAMIN [Concomitant]
     Indication: ARTHROPATHY
     Dosage: 400/500 MG DAILY
  5. FINASTERIDE [Concomitant]
     Indication: URINARY RETENTION
     Dosage: 5 MG, DAILY
  6. JANUVIA [Concomitant]
     Indication: BLOOD GLUCOSE ABNORMAL
     Dosage: 100 MG, 2X/DAY
  7. JUVENON [Concomitant]
     Dosage: UNKNOWN DOSE TWO TIMES A DAY
  8. LIPITOR [Concomitant]
     Indication: BLOOD CHOLESTEROL ABNORMAL
     Dosage: 40 MG, DAILY
  9. MELOXICAM [Concomitant]
     Indication: CHEMOTHERAPY
     Dosage: 15 MG, 2X/DAY
  10. METFORMIN [Concomitant]
     Indication: BLOOD GLUCOSE ABNORMAL
     Dosage: 500 MG, 2X/DAY
  11. OMEPRAZOLE [Concomitant]
     Indication: HIATUS HERNIA
     Dosage: 20 MG, 2X/DAY
  12. OMEPRAZOLE [Concomitant]
     Indication: GASTROOESOPHAGEAL REFLUX DISEASE
  13. TAMSULOSIN [Concomitant]
     Indication: URINARY RETENTION
     Dosage: 0.8 MG, DAILY
  14. VITAMIN D3 [Concomitant]
     Indication: VITAMIN D DECREASED
     Dosage: 3000 IU, DAILY

REACTIONS (13)
  - Drug level decreased [Not Recovered/Not Resolved]
  - Toxicity to various agents [Not Recovered/Not Resolved]
  - Feeling abnormal [Not Recovered/Not Resolved]
  - Thinking abnormal [Not Recovered/Not Resolved]
  - Mania [Not Recovered/Not Resolved]
  - Chapped lips [Not Recovered/Not Resolved]
  - Lip exfoliation [Not Recovered/Not Resolved]
  - Vision blurred [Not Recovered/Not Resolved]
  - Disorientation [Not Recovered/Not Resolved]
  - Eye swelling [Not Recovered/Not Resolved]
  - Swelling face [Not Recovered/Not Resolved]
  - Drug ineffective [Not Recovered/Not Resolved]
  - Erythema [Not Recovered/Not Resolved]
